FAERS Safety Report 5910890-9 (Version None)
Quarter: 2008Q4

REPORT INFORMATION
  Report Type: 
  Country: None (occurrence: None)
  Receive Date: 20081007
  Receipt Date: 20080625
  Transmission Date: 20090506
  Serious: No
  Sender: FDA-Public Use
  Company Number: US-ASTRAZENECA-2008UW12789

PATIENT
  Age: 52 Year
  Sex: Female
  Weight: 49.9 kg

DRUGS (2)
  1. ARIMIDEX [Suspect]
     Indication: BREAST CANCER
     Route: 048
  2. ZOLADEX [Concomitant]
     Indication: OESTROGEN THERAPY
     Route: 058

REACTIONS (2)
  - AMNESIA [None]
  - POOR PERIPHERAL CIRCULATION [None]
